FAERS Safety Report 11699780 (Version 1)
Quarter: 2015Q4

REPORT INFORMATION
  Report Type: Spontaneous
  Country: GB (occurrence: GB)
  Receive Date: 20151105
  Receipt Date: 20151105
  Transmission Date: 20160304
  Serious: Yes (Life-Threatening, Hospitalization)
  Sender: FDA-Public Use
  Company Number: GB-ACCORD-035010

PATIENT
  Age: 72 Year
  Sex: Female

DRUGS (9)
  1. OMEPRAZOLE. [Concomitant]
     Active Substance: OMEPRAZOLE
  2. SALBUTAMOL [Concomitant]
     Active Substance: ALBUTEROL
  3. FUROSEMIDE. [Concomitant]
     Active Substance: FUROSEMIDE
  4. PERINDOPRIL/PERINDOPRIL ERBUMINE [Concomitant]
  5. ALLOPURINOL/ALLOPURINOL SODIUM [Suspect]
     Active Substance: ALLOPURINOL SODIUM
     Indication: GOUT
     Route: 048
  6. METFORMIN [Concomitant]
     Active Substance: METFORMIN HYDROCHLORIDE
  7. WARFARIN [Suspect]
     Active Substance: WARFARIN
     Indication: ATRIAL FIBRILLATION
     Route: 048
  8. MENTHA X PIPERITA [Concomitant]
  9. TIOTROPIUM/TIOTROPIUM BROMIDE [Concomitant]

REACTIONS (1)
  - International normalised ratio increased [Unknown]
